FAERS Safety Report 13996171 (Version 1)
Quarter: 2017Q3

REPORT INFORMATION
  Report Type: Spontaneous
  Country: US (occurrence: US)
  Receive Date: 20170921
  Receipt Date: 20170921
  Transmission Date: 20171128
  Serious: Yes (Other)
  Sender: FDA-Public Use
  Company Number: US-GUERBET-US-20170181

PATIENT
  Sex: Female

DRUGS (1)
  1. OPTIMARK [Suspect]
     Active Substance: GADOVERSETAMIDE
     Indication: NUCLEAR MAGNETIC RESONANCE IMAGING
     Route: 042

REACTIONS (11)
  - Skin hypertrophy [Not Recovered/Not Resolved]
  - Emotional distress [Not Recovered/Not Resolved]
  - Mental impairment [Not Recovered/Not Resolved]
  - Headache [Not Recovered/Not Resolved]
  - Cognitive disorder [Not Recovered/Not Resolved]
  - Skin swelling [Not Recovered/Not Resolved]
  - Skin exfoliation [Not Recovered/Not Resolved]
  - Pain [Not Recovered/Not Resolved]
  - Anxiety [Not Recovered/Not Resolved]
  - Gadolinium deposition disease [Not Recovered/Not Resolved]
  - Erythema [Not Recovered/Not Resolved]
